FAERS Safety Report 16936318 (Version 1)
Quarter: 2019Q4

REPORT INFORMATION
  Report Type: Spontaneous
  Country: US (occurrence: US)
  Receive Date: 20191018
  Receipt Date: 20191018
  Transmission Date: 20200122
  Serious: No
  Sender: FDA-Public Use
  Company Number: US-BAUSCH-BL-2019-009240

PATIENT
  Sex: Female

DRUGS (2)
  1. JUBLIA [Suspect]
     Active Substance: EFINACONAZOLE
     Dosage: NEW REFILL; AT NIGHT
     Route: 061
     Dates: start: 201903
  2. JUBLIA [Suspect]
     Active Substance: EFINACONAZOLE
     Indication: FUNGAL SKIN INFECTION
     Dosage: AT NIGHT
     Route: 061
     Dates: start: 201810, end: 201903

REACTIONS (5)
  - Product quality issue [Unknown]
  - Patient dissatisfaction with treatment [Unknown]
  - Product container issue [Unknown]
  - Overdose [Unknown]
  - No adverse event [Unknown]

NARRATIVE: CASE EVENT DATE: 2019
